FAERS Safety Report 6163417-3 (Version None)
Quarter: 2009Q2

REPORT INFORMATION
  Report Type: 
  Country: None (occurrence: None)
  Receive Date: 20090422
  Receipt Date: 20090417
  Transmission Date: 20091009
  Serious: Yes (Life-Threatening, Hospitalization)
  Sender: FDA-Public Use
  Company Number: PHEH2009US03540

PATIENT
  Sex: Female

DRUGS (9)
  1. RECLAST [Suspect]
     Indication: OSTEOPOROSIS
     Dosage: 5 MG
     Dates: start: 20090401, end: 20090401
  2. SINGULAIR [Concomitant]
     Indication: ASTHMA
     Dosage: 10 UNK, UNK
     Route: 048
  3. LEXAPRO [Concomitant]
     Indication: DEPRESSION
     Dosage: 20 UNK, UNK
     Route: 048
  4. OMEPRAZOLE [Concomitant]
     Indication: GASTROOESOPHAGEAL REFLUX DISEASE
     Dosage: 20 UNK, UNK
     Route: 048
  5. ASPIRIN [Concomitant]
     Dosage: 81 UNK, UNK
     Route: 048
  6. PRIMIDONE [Concomitant]
     Dosage: 50 UNK, UNK
     Route: 048
  7. ADVAIR HFA [Concomitant]
     Indication: ASTHMA
     Dosage: 250/50
     Route: 048
  8. NASACORT [Concomitant]
     Route: 048
  9. SIMVASTATIN [Concomitant]
     Indication: DYSLIPIDAEMIA
     Dosage: 80 UNK, UNK
     Route: 048

REACTIONS (6)
  - ANGIOEDEMA [None]
  - BRONCHOSPASM [None]
  - CHEST DISCOMFORT [None]
  - DYSPNOEA [None]
  - PRURITUS [None]
  - RASH [None]
